FAERS Safety Report 12720335 (Version 1)
Quarter: 2016Q3

REPORT INFORMATION
  Report Type: Spontaneous
  Country: GB (occurrence: GB)
  Receive Date: 20160907
  Receipt Date: 20160907
  Transmission Date: 20161109
  Serious: Yes (Disabling, Other)
  Sender: FDA-Public Use
  Company Number: GB-DRREDDYS-GER/UKI/16/0083012

PATIENT
  Age: 69 Year
  Sex: Female
  Weight: 60.77 kg

DRUGS (6)
  1. EZETROL [Suspect]
     Active Substance: EZETIMIBE
     Indication: BLOOD CHOLESTEROL INCREASED
     Dosage: 10MG TO 40MG
     Route: 048
     Dates: start: 20141019, end: 20160819
  2. ROSUVASTATIN. [Suspect]
     Active Substance: ROSUVASTATIN
     Indication: BLOOD CHOLESTEROL INCREASED
     Dosage: 10MG TO 40MG
     Route: 048
     Dates: start: 20141019, end: 20160819
  3. PRAVASTATIN. [Suspect]
     Active Substance: PRAVASTATIN
     Indication: BLOOD CHOLESTEROL INCREASED
     Dosage: 10MG TO 40MG
     Route: 048
     Dates: start: 20141019, end: 20160819
  4. ATORVASTATIN [Suspect]
     Active Substance: ATORVASTATIN
     Indication: BLOOD CHOLESTEROL INCREASED
     Dosage: 10MG TO 40MG
     Route: 048
     Dates: start: 20141019, end: 20160819
  5. IBUPROFEN. [Concomitant]
     Active Substance: IBUPROFEN
     Indication: PRODUCT USED FOR UNKNOWN INDICATION
  6. CLOFIBRATE [Suspect]
     Active Substance: CLOFIBRATE
     Indication: BLOOD CHOLESTEROL INCREASED
     Dosage: 10MG TO 40MG
     Route: 048
     Dates: start: 20141019, end: 20160819

REACTIONS (2)
  - Arthropathy [Unknown]
  - Pain [Not Recovered/Not Resolved]

NARRATIVE: CASE EVENT DATE: 20141031
